FAERS Safety Report 16182354 (Version 3)
Quarter: 2019Q2

REPORT INFORMATION
  Report Type: Report from Study
  Country: TW (occurrence: TW)
  Receive Date: 20190411
  Receipt Date: 20190430
  Transmission Date: 20190711
  Serious: Yes (Hospitalization, Other)
  Sender: FDA-Public Use
  Company Number: TW-EMD SERONO-9083610

PATIENT
  Age: 16 Year
  Sex: Female

DRUGS (2)
  1. BETAMETHASONE. [Concomitant]
     Active Substance: BETAMETHASONE
     Indication: PRODUCT USED FOR UNKNOWN INDICATION
  2. REBIF [Suspect]
     Active Substance: INTERFERON BETA-1A
     Indication: MULTIPLE SCLEROSIS
     Route: 058
     Dates: start: 20190328, end: 20190404

REACTIONS (6)
  - Troponin increased [Recovering/Resolving]
  - Cardiac disorder [Unknown]
  - Intensive care unit delirium [Unknown]
  - Chest pain [Recovering/Resolving]
  - Syncope [Recovered/Resolved]
  - Brain natriuretic peptide abnormal [Recovering/Resolving]

NARRATIVE: CASE EVENT DATE: 201904
